FAERS Safety Report 18016575 (Version 1)
Quarter: 2020Q3

REPORT INFORMATION
  Report Type: Spontaneous
  Country: FR (occurrence: FR)
  Receive Date: 20200713
  Receipt Date: 20200713
  Transmission Date: 20201103
  Serious: Yes (Other)
  Sender: FDA-Public Use
  Company Number: FR-SA-2020SA177095

PATIENT

DRUGS (7)
  1. PREDNISOLONE. [Concomitant]
     Active Substance: PREDNISOLONE
     Indication: VOMITING
     Dosage: 40 MG D2 AND D3 POST?CHEMO
     Route: 048
     Dates: start: 20191018, end: 20200402
  2. SODIUM BICARBONATE. [Concomitant]
     Active Substance: SODIUM BICARBONATE
     Indication: STOMATITIS
     Dosage: BDB AFTER MEALS
     Route: 002
     Dates: start: 20191018, end: 20200402
  3. FLUOROURACIL. [Suspect]
     Active Substance: FLUOROURACIL
     Indication: COLORECTAL ADENOCARCINOMA
     Dosage: 48?HOUR CASSETTE / CARTRIDGE
     Route: 042
     Dates: start: 20191018, end: 20200331
  4. METOCLOPRAMIDE. [Concomitant]
     Active Substance: METOCLOPRAMIDE
     Indication: VOMITING
     Dosage: 10 MG IF NAUSEA, UP TO 30 MG / D
     Route: 048
     Dates: start: 20191018, end: 20200402
  5. OXALIPLATIN. [Suspect]
     Active Substance: OXALIPLATIN
     Indication: COLORECTAL ADENOCARCINOMA
     Dosage: 85 MG/M2, QOW
     Route: 042
     Dates: start: 20191018, end: 20200204
  6. LOPERAMIDE HYDROCHLORIDE. [Concomitant]
     Active Substance: LOPERAMIDE HYDROCHLORIDE
     Indication: DIARRHOEA
     Dosage: 2 MG IF DIARRHEA, MAX 8 PER DAY
     Route: 048
     Dates: start: 20191018, end: 20200402
  7. APREPITANT. [Concomitant]
     Active Substance: APREPITANT
     Indication: VOMITING
     Dosage: 125 MG D1 AND 80 MG D2?D3 POST?CHEMO
     Route: 048
     Dates: start: 20191018, end: 20200402

REACTIONS (3)
  - Neuropathy peripheral [Unknown]
  - Interstitial lung disease [Recovered/Resolved]
  - Agranulocytosis [Recovered/Resolved]

NARRATIVE: CASE EVENT DATE: 20200113
